FAERS Safety Report 4316442-9 (Version None)
Quarter: 2004Q1

REPORT INFORMATION
  Report Type: 
  Country: None (occurrence: None)
  Receive Date: 20040312
  Receipt Date: 20040301
  Transmission Date: 20041129
  Serious: Yes (Other)
  Sender: FDA-Public Use
  Company Number: ES-BRISTOL-MYERS SQUIBB COMPANY-12520763

PATIENT
  Age: 66 Year
  Sex: Female

DRUGS (6)
  1. CEFEPIME HCL [Suspect]
     Indication: PYREXIA
  2. FLUCONAZOLE [Suspect]
     Indication: PYREXIA
  3. VANCOMYCIN [Suspect]
     Indication: PYREXIA
     Dosage: DOSE ADJUSTED FROM 1 GRAM TO 0.5 G EVERY 12 HOURS
  4. IDARUBICIN HCL [Concomitant]
  5. CYTARABINE [Concomitant]
  6. ETOPOSIDE [Concomitant]

REACTIONS (7)
  - CONFUSIONAL STATE [None]
  - DEHYDRATION [None]
  - DEPRESSED LEVEL OF CONSCIOUSNESS [None]
  - DISORIENTATION [None]
  - ENCEPHALOPATHY [None]
  - RENAL FAILURE ACUTE [None]
  - STATUS EPILEPTICUS [None]
